FAERS Safety Report 10705745 (Version 1)
Quarter: 2015Q1

REPORT INFORMATION
  Report Type: Spontaneous
  Country: US (occurrence: US)
  Receive Date: 20150112
  Receipt Date: 20150112
  Transmission Date: 20150721
  Serious: Yes (Hospitalization, Other)
  Sender: FDA-Public Use
  Company Number: US-AMGEN-USASP2015000614

PATIENT
  Age: 81 Year
  Sex: Female

DRUGS (2)
  1. NEULASTA [Suspect]
     Active Substance: PEGFILGRASTIM
     Indication: PRODUCT USED FOR UNKNOWN INDICATION
     Dosage: UNK
     Route: 065
  2. NEUPOGEN [Suspect]
     Active Substance: FILGRASTIM
     Indication: PRODUCT USED FOR UNKNOWN INDICATION
     Dosage: UNK
     Route: 065
     Dates: start: 201312

REACTIONS (6)
  - Metastases to lung [Unknown]
  - White blood cell count abnormal [Unknown]
  - Pneumothorax [Unknown]
  - Urinary tract infection [Unknown]
  - Intestinal obstruction [Unknown]
  - Thrombosis [Unknown]

NARRATIVE: CASE EVENT DATE: 201312
